FAERS Safety Report 17565534 (Version 4)
Quarter: 2020Q2

REPORT INFORMATION
  Report Type: Spontaneous
  Country: US (occurrence: US)
  Receive Date: 20200320
  Receipt Date: 20200522
  Transmission Date: 20200713
  Serious: No
  Sender: FDA-Public Use
  Company Number: US-PFIZER INC-2020120628

PATIENT
  Age: 62 Year
  Sex: Male

DRUGS (3)
  1. SOMAVERT [Suspect]
     Active Substance: PEGVISOMANT
     Indication: GIGANTISM
  2. SOMAVERT [Suspect]
     Active Substance: PEGVISOMANT
     Indication: HYPOPITUITARISM
     Dosage: 10 MG, DAILY (SOMAVERT 10MG KIT - INJECT 10MG UNDER THE SKIN EVERY DAY)
     Route: 058
     Dates: start: 20200218
  3. SOMAVERT [Suspect]
     Active Substance: PEGVISOMANT
     Indication: ACROMEGALY

REACTIONS (1)
  - Insulin-like growth factor abnormal [Unknown]
